FAERS Safety Report 7464248-4 (Version None)
Quarter: 2011Q2

REPORT INFORMATION
  Report Type: 
  Country: None (occurrence: None)
  Receive Date: 20110506
  Receipt Date: 20110502
  Transmission Date: 20111010
  Serious: Yes (Life-Threatening, Hospitalization)
  Sender: FDA-Public Use
  Company Number: US-ASTRAZENECA-2010SE41533

PATIENT
  Age: 23573 Day
  Sex: Female

DRUGS (10)
  1. SYMBICORT [Suspect]
     Indication: ASTHMA
     Dosage: 160/4.5 TWO PUFFS TWICE A DAY
     Route: 055
     Dates: start: 20080101
  2. ENALAPRIL [Concomitant]
  3. ALBUTEROL [Concomitant]
     Dosage: PRN
  4. VERAPAMIL [Concomitant]
  5. METFORMIN [Concomitant]
  6. SYMBICORT [Suspect]
     Indication: CHRONIC OBSTRUCTIVE PULMONARY DISEASE
     Dosage: 160/4.5 TWO PUFFS TWICE A DAY
     Route: 055
     Dates: start: 20080101
  7. POTASSIUM [Concomitant]
  8. GLUCOPHAGE [Concomitant]
  9. LASIX [Concomitant]
  10. GENERIC CELEXA [Concomitant]

REACTIONS (3)
  - PNEUMONIA [None]
  - MALAISE [None]
  - RESPIRATORY FAILURE [None]
